FAERS Safety Report 5387553-4 (Version None)
Quarter: 2007Q3

REPORT INFORMATION
  Report Type: 
  Country: None (occurrence: None)
  Receive Date: 20070712
  Receipt Date: 20070702
  Transmission Date: 20080115
  Serious: Yes (Other)
  Sender: FDA-Public Use
  Company Number: 2007RR-08326

PATIENT
  Age: 40 Year
  Sex: Male

DRUGS (1)
  1. ACYCLOVIR [Suspect]
     Indication: ENCEPHALITIS VIRAL
     Dosage: INTRAVENOUS
     Route: 042

REACTIONS (2)
  - DELUSION [None]
  - PSYCHOTIC DISORDER [None]
